FAERS Safety Report 10164816 (Version 1)
Quarter: 2014Q2

REPORT INFORMATION
  Report Type: Spontaneous
  Country: US (occurrence: US)
  Receive Date: 20140510
  Receipt Date: 20140510
  Transmission Date: 20141212
  Serious: No
  Sender: FDA-Public Use
  Company Number: US-BRISTOL-MYERS SQUIBB COMPANY-20195020

PATIENT
  Age: 68 Year
  Sex: Female
  Weight: 96.6 kg

DRUGS (1)
  1. BYDUREON [Suspect]
     Dates: start: 2013

REACTIONS (4)
  - Increased appetite [Unknown]
  - Haemorrhoids [Unknown]
  - Injection site mass [Unknown]
  - Constipation [Unknown]
